FAERS Safety Report 4407645-3 (Version None)
Quarter: 2004Q3

REPORT INFORMATION
  Report Type: 
  Country: None (occurrence: None)
  Receive Date: 20040726
  Receipt Date: 20031121
  Transmission Date: 20050211
  Serious: Yes (Disabling)
  Sender: FDA-Public Use
  Company Number: US-MERCK-0311USA02530

PATIENT
  Sex: Female
  Weight: 60 kg

DRUGS (8)
  1. ULTRACET [Concomitant]
     Indication: ANALGESIC EFFECT
     Route: 065
     Dates: start: 19990101, end: 20030101
  2. ASPIRIN [Concomitant]
     Route: 065
     Dates: start: 19990101
  3. WELLBUTRIN [Concomitant]
     Indication: DEPRESSION
     Route: 065
     Dates: start: 19940101, end: 19950101
  4. WELLBUTRIN [Concomitant]
     Route: 065
     Dates: start: 19990101, end: 19990101
  5. BUTALBITAL [Concomitant]
     Indication: MIGRAINE
     Route: 065
     Dates: start: 19990101, end: 20040101
  6. NITROGLYCERIN [Concomitant]
     Route: 065
     Dates: start: 19990501
  7. VIOXX [Suspect]
     Indication: ARTHRITIS
     Route: 048
     Dates: end: 19990501
  8. ULTRAM [Concomitant]
     Indication: ANALGESIC EFFECT
     Route: 065
     Dates: start: 19990101, end: 20030101

REACTIONS (2)
  - EMOTIONAL DISTRESS [None]
  - MYOCARDIAL INFARCTION [None]
